FAERS Safety Report 5862958-3 (Version None)
Quarter: 2008Q3

REPORT INFORMATION
  Report Type: 
  Country: None (occurrence: None)
  Receive Date: 20080828
  Receipt Date: 20080819
  Transmission Date: 20090109
  Serious: Yes (Hospitalization)
  Sender: FDA-Public Use
  Company Number: US-ABBOTT-08P-163-0471521-00

PATIENT
  Sex: Male

DRUGS (5)
  1. HUMIRA [Suspect]
     Indication: PSORIATIC ARTHROPATHY
     Route: 058
     Dates: start: 20060901, end: 20080101
  2. HUMIRA [Suspect]
     Indication: PSORIASIS
  3. MORNIFLUMATE [Concomitant]
     Indication: PROSTATIC DISORDER
     Route: 048
  4. LOSARTAN POTASSIUM [Concomitant]
     Indication: HYPERTENSION
     Route: 048
  5. ALLOPURINOL [Concomitant]
     Indication: GOUT
     Route: 048

REACTIONS (3)
  - BLOOD CREATININE INCREASED [None]
  - MALAISE [None]
  - TUBERCULOSIS [None]
